FAERS Safety Report 17112855 (Version 7)
Quarter: 2022Q2

REPORT INFORMATION
  Report Type: Spontaneous
  Country: DE (occurrence: DE)
  Receive Date: 20191204
  Receipt Date: 20220430
  Transmission Date: 20220721
  Serious: Yes (Hospitalization, Other)
  Sender: FDA-Public Use
  Company Number: NVSC2019DE053908

PATIENT
  Age: 69 Year
  Sex: Male
  Weight: 105 kg

DRUGS (11)
  1. VALSARTAN [Suspect]
     Active Substance: VALSARTAN
     Indication: Hypertension
     Dosage: 160 MG, QD
     Route: 065
     Dates: start: 201511, end: 201810
  2. BISOPROLOL FUMARATE [Concomitant]
     Active Substance: BISOPROLOL FUMARATE
     Indication: Hypertension
     Dosage: 1 DF, QD (MORNING) (1X 5)
     Route: 065
     Dates: start: 2012
  3. BISOPROLOL FUMARATE [Concomitant]
     Active Substance: BISOPROLOL FUMARATE
     Dosage: 1 DF, QD (1 TAB IN MORNING AND HALF IN EVENING) (1X 5)
     Route: 065
     Dates: start: 202005
  4. VALSARTAN [Concomitant]
     Active Substance: VALSARTAN
     Indication: Hypertension
     Dosage: 1 DF, QD (1X 160 MORNING)
     Route: 065
     Dates: start: 201810
  5. VALSARTAN [Concomitant]
     Active Substance: VALSARTAN
     Dosage: 1 DF, QD (1X 160 EVENING)
     Route: 065
     Dates: start: 202005
  6. ASPIRIN [Concomitant]
     Active Substance: ASPIRIN
     Indication: Anticoagulant therapy
     Dosage: 1 DF, QD (1X 100 NOON)
     Route: 065
  7. ACETYLCYSTEINE [Concomitant]
     Active Substance: ACETYLCYSTEINE
     Indication: Product used for unknown indication
     Dosage: 1 DF, QD (1X 600 MORNING)
     Route: 065
  8. IBUPROFEN [Concomitant]
     Active Substance: IBUPROFEN
     Indication: Product used for unknown indication
     Dosage: 1 DF, TID (1 X 600)
     Route: 065
  9. PANTOZOL [Concomitant]
     Active Substance: PANTOPRAZOLE SODIUM
     Indication: Product used for unknown indication
     Dosage: 1 DF, QD (1X 40 MORNING)
     Route: 065
  10. DIOVAN [Concomitant]
     Active Substance: VALSARTAN
     Indication: Hypertension
     Dosage: 1 DF, QD,1X 160 MG, ONCE IN MORNING
     Route: 065
     Dates: start: 20100216
  11. VALSARTAN [Concomitant]
     Active Substance: VALSARTAN
     Indication: Hypertension
     Dosage: 1 DF, QD, 1X 160 MG
     Route: 065

REACTIONS (33)
  - Prostate cancer [Recovered/Resolved]
  - Prostate cancer [Recovered/Resolved]
  - General physical health deterioration [Recovered/Resolved]
  - Autonomic nervous system imbalance [Recovered/Resolved]
  - Urinary incontinence [Recovering/Resolving]
  - Nocturia [Recovered/Resolved]
  - Fear of disease [Recovered/Resolved]
  - Erectile dysfunction [Recovered/Resolved]
  - Lymphocele [Not Recovered/Not Resolved]
  - Carotid arteriosclerosis [Unknown]
  - Blood uric acid increased [Unknown]
  - Disturbance in attention [Unknown]
  - Hypertonia [Unknown]
  - Benign prostatic hyperplasia [Unknown]
  - Haemoglobin decreased [Unknown]
  - Emotional distress [Unknown]
  - General physical condition abnormal [Unknown]
  - Fear of disease [Unknown]
  - Mental disorder [Unknown]
  - Product contamination [Unknown]
  - Aortic valve disease [Unknown]
  - Hepatomegaly [Unknown]
  - Prostatomegaly [Unknown]
  - Left ventricular enlargement [Unknown]
  - Goitre [Unknown]
  - Lipid metabolism disorder [Unknown]
  - Gouty arthritis [Unknown]
  - Febrile infection [Unknown]
  - Obesity [Unknown]
  - Vitamin D deficiency [Unknown]
  - Hypoaesthesia [Unknown]
  - White blood cells urine positive [Unknown]
  - Atrial tachycardia [Unknown]

NARRATIVE: CASE EVENT DATE: 20190101
